FAERS Safety Report 15622273 (Version 1)
Quarter: 2018Q4

REPORT INFORMATION
  Report Type: Spontaneous
  Country: NL (occurrence: NL)
  Receive Date: 20181115
  Receipt Date: 20181115
  Transmission Date: 20190205
  Serious: Yes (Life-Threatening, Hospitalization, Other)
  Sender: FDA-Public Use
  Company Number: NL-PFIZER INC-2018466942

PATIENT
  Age: 70 Year
  Sex: Male
  Weight: 98 kg

DRUGS (12)
  1. METFORMIN [Suspect]
     Active Substance: METFORMIN HYDROCHLORIDE
     Dosage: 850 MG, 2X/DAY
  2. AMLODIPINE BESILATE [Suspect]
     Active Substance: AMLODIPINE BESYLATE
     Dosage: 5 MG, UNK
  3. HYDROCHLOORTHIAZIDE [Suspect]
     Active Substance: HYDROCHLOROTHIAZIDE
     Dosage: 25 MG, UNK
  4. ATORVASTATINE PFIZER [Suspect]
     Active Substance: ATORVASTATIN
     Dosage: 10 MG, UNK
  5. COZAAR [Suspect]
     Active Substance: LOSARTAN POTASSIUM
     Dosage: 100 MG, UNK
  6. NOVORAPID [Suspect]
     Active Substance: INSULIN ASPART
     Dosage: RARELY
  7. LEFLUNOMIDE. [Suspect]
     Active Substance: LEFLUNOMIDE
     Dosage: UNK
  8. GLIMEPIRIDE. [Suspect]
     Active Substance: GLIMEPIRIDE
     Dosage: 6 MG, UNK
  9. CIMZIA [Suspect]
     Active Substance: CERTOLIZUMAB PEGOL
     Dosage: 200 MG, EVERY 2 WEEKS
     Dates: start: 2016
  10. LANTUS [Suspect]
     Active Substance: INSULIN GLARGINE
     Dosage: 8-12 UNITS
  11. CIMZIA [Suspect]
     Active Substance: CERTOLIZUMAB PEGOL
     Dosage: 200 MG, EVERY 3 WEEKS
  12. VICTOZA [Suspect]
     Active Substance: LIRAGLUTIDE
     Dosage: 1.8 (UNIT NOT REPORTED)
     Dates: start: 2011

REACTIONS (4)
  - Skin hypertrophy [Not Recovered/Not Resolved]
  - Erythema [Not Recovered/Not Resolved]
  - Pruritus [Not Recovered/Not Resolved]
  - Haemorrhagic stroke [Unknown]

NARRATIVE: CASE EVENT DATE: 20171031
